FAERS Safety Report 10037543 (Version 1)
Quarter: 2014Q1

REPORT INFORMATION
  Report Type: Spontaneous
  Country: CN (occurrence: CN)
  Receive Date: 20140326
  Receipt Date: 20140326
  Transmission Date: 20141002
  Serious: Yes (Death)
  Sender: FDA-Public Use
  Company Number: CN-ASTELLAS-2014JP002621

PATIENT
  Age: 59 Year
  Sex: Male
  Weight: 57 kg

DRUGS (2)
  1. MYCAMINE [Suspect]
     Indication: LUNG INFECTION
     Dosage: 150 MG, UID/QD
     Route: 042
     Dates: start: 20140202, end: 20140207
  2. MEROPENEM [Concomitant]
     Indication: LUNG INFECTION
     Dosage: 200 MG, UID/QD
     Route: 042
     Dates: start: 20140128, end: 20140207

REACTIONS (2)
  - Drug ineffective [Recovered/Resolved]
  - Death [Fatal]
